FAERS Safety Report 20131854 (Version 1)
Quarter: 2021Q4

REPORT INFORMATION
  Report Type: Spontaneous
  Country: GB (occurrence: None)
  Receive Date: 20211130
  Receipt Date: 20211130
  Transmission Date: 20220303
  Serious: Yes (Life-Threatening, Hospitalization, Disabling, Other)
  Sender: FDA-Public Use
  Company Number: 2021A848476

PATIENT
  Age: 31 Year
  Sex: Female

DRUGS (26)
  1. OMEPRAZOLE [Suspect]
     Active Substance: OMEPRAZOLE
     Indication: Dyspepsia
     Route: 048
     Dates: start: 20110525
  2. AMITRIPTYLINE [Suspect]
     Active Substance: AMITRIPTYLINE
     Indication: Neuralgia
     Route: 065
     Dates: start: 20110810
  3. CODEINE PHOSPHATE [Suspect]
     Active Substance: CODEINE PHOSPHATE
     Indication: Analgesic therapy
     Route: 048
     Dates: start: 20110615, end: 20110723
  4. CODEINE PHOSPHATE [Suspect]
     Active Substance: CODEINE PHOSPHATE
     Indication: Serotonin syndrome
     Route: 048
     Dates: start: 20110615, end: 20110723
  5. DIAZEPAM [Suspect]
     Active Substance: DIAZEPAM
     Indication: Muscle spasms
     Route: 065
  6. DIAZEPAM [Suspect]
     Active Substance: DIAZEPAM
     Indication: Serotonin syndrome
     Route: 065
  7. DIAZEPAM [Suspect]
     Active Substance: DIAZEPAM
     Indication: Muscle spasms
     Route: 065
     Dates: start: 20110725, end: 20110725
  8. DIAZEPAM [Suspect]
     Active Substance: DIAZEPAM
     Indication: Serotonin syndrome
     Route: 065
     Dates: start: 20110725, end: 20110725
  9. DOMPERIDONE [Suspect]
     Active Substance: DOMPERIDONE
     Indication: Product used for unknown indication
     Route: 065
  10. LORAZEPAM [Suspect]
     Active Substance: LORAZEPAM
     Route: 048
     Dates: start: 20110224, end: 20110410
  11. LORAZEPAM [Suspect]
     Active Substance: LORAZEPAM
     Route: 048
     Dates: start: 20110523, end: 20110627
  12. PAROXETINE [Suspect]
     Active Substance: PAROXETINE
     Indication: Post-traumatic stress disorder
     Route: 048
     Dates: start: 201012
  13. PAROXETINE [Suspect]
     Active Substance: PAROXETINE
     Indication: Post-traumatic stress disorder
     Dosage: 60.0MG UNKNOWN
     Route: 048
     Dates: start: 1997, end: 201105
  14. PAROXETINE [Suspect]
     Active Substance: PAROXETINE
     Indication: Post-traumatic stress disorder
     Dosage: 40.0MG UNKNOWN
     Route: 048
     Dates: start: 19990801, end: 20110706
  15. PAROXETINE [Suspect]
     Active Substance: PAROXETINE
     Indication: Post-traumatic stress disorder
     Dosage: 60.0MG UNKNOWN
     Route: 048
     Dates: start: 19990801, end: 201105
  16. PAROXETINE [Suspect]
     Active Substance: PAROXETINE
     Indication: Post-traumatic stress disorder
     Dosage: 40.0MG UNKNOWN
     Route: 048
     Dates: start: 201105, end: 20110706
  17. PAROXETINE [Suspect]
     Active Substance: PAROXETINE
     Indication: Post-traumatic stress disorder
     Dosage: UNKNOWN
     Route: 048
     Dates: start: 1999
  18. PAROXETINE [Suspect]
     Active Substance: PAROXETINE
     Indication: Post-traumatic stress disorder
     Dosage: 60.0MG UNKNOWN
     Route: 048
     Dates: start: 1999, end: 201105
  19. PHOSPHORUS [Suspect]
     Active Substance: PHOSPHORUS
     Indication: Product used for unknown indication
     Route: 065
  20. PROCYCLIDINE [Suspect]
     Active Substance: PROCYCLIDINE
     Dosage: 20.0MG UNKNOWN
     Route: 048
     Dates: start: 20110324, end: 20110506
  21. PROCYCLIDINE [Suspect]
     Active Substance: PROCYCLIDINE
     Dosage: UNKNOWN
     Route: 065
     Dates: start: 20110415
  22. PROCYCLIDINE [Suspect]
     Active Substance: PROCYCLIDINE
     Dosage: 5.0MG UNKNOWN
     Route: 048
     Dates: start: 20110503, end: 20110510
  23. PAROXETINE HYDROCHLORIDE [Suspect]
     Active Substance: PAROXETINE HYDROCHLORIDE
     Indication: Depression
     Route: 048
     Dates: start: 19990801, end: 201105
  24. PAROXETINE HYDROCHLORIDE [Suspect]
     Active Substance: PAROXETINE HYDROCHLORIDE
     Indication: Depression
     Route: 048
     Dates: start: 201105, end: 20110706
  25. CLONAZEPAM [Concomitant]
     Active Substance: CLONAZEPAM
     Indication: Sedation
     Route: 048
     Dates: start: 20110224, end: 20110410
  26. QUETIAPINE [Concomitant]
     Active Substance: QUETIAPINE
     Indication: Psychotic disorder
     Dosage: 300.0MG UNKNOWN
     Dates: start: 20110224, end: 20110506

REACTIONS (5)
  - Limb injury [Unknown]
  - Skin discolouration [Not Recovered/Not Resolved]
  - Arthralgia [Unknown]
  - Somnolence [Unknown]
  - Drug ineffective [Unknown]

NARRATIVE: CASE EVENT DATE: 20110101
